FAERS Safety Report 8843297 (Version 1)
Quarter: 2012Q4

REPORT INFORMATION
  Report Type: 
  Country: US (occurrence: US)
  Receive Date: 20121016
  Receipt Date: 20121016
  Transmission Date: 20130627
  Serious: No
  Sender: FDA-Public Use
  Company Number: US-ASTRAZENECA-2012SE77612

PATIENT
  Age: 70 Year
  Sex: Male

DRUGS (5)
  1. PULMICORT FLEXHALER [Suspect]
     Indication: ASTHMA
     Route: 055
  2. ALBUTEROL [Concomitant]
  3. SEREVENT [Concomitant]
  4. SPIRIVA [Concomitant]
  5. XOLAIR [Concomitant]

REACTIONS (1)
  - Asthma [Unknown]
